FAERS Safety Report 13639330 (Version 1)
Quarter: 2017Q2

REPORT INFORMATION
  Report Type: Spontaneous
  Country: US (occurrence: US)
  Receive Date: 20170609
  Receipt Date: 20170609
  Transmission Date: 20170830
  Serious: No
  Sender: FDA-Public Use
  Company Number: US-ROCHE-1183349

PATIENT
  Sex: Male

DRUGS (22)
  1. VITAMIN E [Concomitant]
     Active Substance: .ALPHA.-TOCOPHEROL
     Route: 065
  2. MS CONTIN [Concomitant]
     Active Substance: MORPHINE SULFATE
     Dosage: 1-2
     Route: 065
  3. FLEXERIL [Concomitant]
     Active Substance: CYCLOBENZAPRINE HYDROCHLORIDE
     Dosage: 1-2
     Route: 065
  4. ANAFRANIL [Concomitant]
     Active Substance: CLOMIPRAMINE HYDROCHLORIDE
     Route: 065
  5. EPIPEN [Concomitant]
     Active Substance: EPINEPHRINE
     Route: 065
  6. VITAMIN C [Concomitant]
     Active Substance: ASCORBIC ACID
     Route: 065
  7. CALCIUM CITRATE [Concomitant]
     Active Substance: CALCIUM CITRATE
     Route: 065
  8. PERI-COLACE [Concomitant]
     Active Substance: CASANTHRANOL\DOCUSATE SODIUM
     Dosage: 5-6
     Route: 065
  9. ECONAZOLE NITRATE. [Concomitant]
     Active Substance: ECONAZOLE NITRATE
     Route: 065
  10. FISH OIL [Concomitant]
     Active Substance: FISH OIL
     Route: 065
  11. ASPIRIN. [Concomitant]
     Active Substance: ASPIRIN
     Route: 065
  12. BIPAP [Concomitant]
     Active Substance: DEVICE
     Route: 065
  13. LYRICA [Concomitant]
     Active Substance: PREGABALIN
     Route: 065
  14. TRIAMCINOLONE [Concomitant]
     Active Substance: TRIAMCINOLONE
     Route: 065
  15. SOMBRA GEL [Concomitant]
     Route: 065
  16. KLONOPIN [Suspect]
     Active Substance: CLONAZEPAM
     Indication: PRODUCT USED FOR UNKNOWN INDICATION
     Route: 065
  17. GLUCOSAMINE WITH MSM [Concomitant]
     Dosage: 500MG/1500MG
     Route: 065
  18. COLAC [Concomitant]
     Dosage: 6-8
     Route: 065
  19. OXYCODONE [Concomitant]
     Active Substance: OXYCODONE
     Dosage: 1-2
     Route: 065
  20. RELAFEN [Concomitant]
     Active Substance: NABUMETONE
     Route: 065
  21. BENEFIBER [Concomitant]
     Active Substance: STARCH, WHEAT
     Route: 065
  22. TENS UNIT [Concomitant]
     Route: 065

REACTIONS (1)
  - Hypersensitivity [Unknown]
